FAERS Safety Report 10167039 (Version 1)
Quarter: 2014Q2

REPORT INFORMATION
  Report Type: Spontaneous
  Country: US (occurrence: None)
  Receive Date: 20140509
  Receipt Date: 20140509
  Transmission Date: 20141212
  Serious: Yes (Hospitalization)
  Sender: FDA-Public Use
  Company Number: None

PATIENT
  Age: 58 Year
  Sex: Male
  Weight: 104.1 kg

DRUGS (3)
  1. DIVALPROEX [Suspect]
     Indication: BIPOLAR I DISORDER
     Route: 048
     Dates: start: 20140227
  2. DIVALPROEX [Suspect]
     Indication: BIPOLAR DISORDER
     Route: 048
     Dates: start: 20140227
  3. DIVALPROEX [Suspect]
     Indication: MANIA
     Route: 048
     Dates: start: 20140227

REACTIONS (3)
  - Confusional state [None]
  - Gait disturbance [None]
  - Toxicity to various agents [None]
